FAERS Safety Report 6177535-7 (Version None)
Quarter: 2009Q2

REPORT INFORMATION
  Report Type: 
  Country: None (occurrence: None)
  Receive Date: 20090504
  Receipt Date: 20090422
  Transmission Date: 20091009
  Serious: Yes (Hospitalization, Other)
  Sender: FDA-Public Use
  Company Number: US-PFIZER INC-2009192856

PATIENT
  Sex: Female
  Weight: 88.8 kg

DRUGS (1)
  1. DEPO-PROVERA [Suspect]
     Indication: CONTRACEPTION
     Dosage: UNK
     Route: 030
     Dates: start: 20090101

REACTIONS (2)
  - BACK PAIN [None]
  - THROMBOTIC THROMBOCYTOPENIC PURPURA [None]
